FAERS Safety Report 14892339 (Version 1)
Quarter: 2018Q2

REPORT INFORMATION
  Report Type: Spontaneous
  Country: US (occurrence: US)
  Receive Date: 20180514
  Receipt Date: 20180514
  Transmission Date: 20180711
  Serious: No
  Sender: FDA-Public Use
  Company Number: US-UNITED THERAPEUTICS-UNT-2018-001095

PATIENT
  Sex: Male

DRUGS (2)
  1. ORENITRAM [Suspect]
     Active Substance: TREPROSTINIL
     Indication: PULMONARY ARTERIAL HYPERTENSION
     Dosage: 2.25 MG, TID
     Route: 048
     Dates: start: 20171022
  2. ORENITRAM [Suspect]
     Active Substance: TREPROSTINIL
     Dosage: 2 MG, TID
     Route: 048

REACTIONS (3)
  - Diarrhoea [Unknown]
  - Constipation [Unknown]
  - Nausea [Unknown]

NARRATIVE: CASE EVENT DATE: 20171022
